FAERS Safety Report 11121155 (Version 2)
Quarter: 2015Q3

REPORT INFORMATION
  Report Type: Spontaneous
  Country: US (occurrence: US)
  Receive Date: 20150519
  Receipt Date: 20150814
  Transmission Date: 20151125
  Serious: Yes (Hospitalization)
  Sender: FDA-Public Use
  Company Number: US-BAYER-2015-245490

PATIENT
  Age: 34 Year
  Sex: Female
  Weight: 65.76 kg

DRUGS (1)
  1. MIRENA [Suspect]
     Active Substance: LEVONORGESTREL
     Indication: CONTRACEPTION
     Dosage: 20 MCG/24HR, CONT
     Route: 015
     Dates: start: 20120622, end: 20130603

REACTIONS (18)
  - Asthenia [None]
  - Depression [None]
  - Uterine perforation [None]
  - Anxiety [None]
  - Injury [None]
  - Migraine [None]
  - Device issue [None]
  - Hypoaesthesia [None]
  - Genital haemorrhage [None]
  - Urinary tract infection [None]
  - Abdominal pain [None]
  - Loss of libido [None]
  - Abdominal pain lower [None]
  - Device dislocation [None]
  - Vaginal discharge [None]
  - Increased tendency to bruise [None]
  - Dyspareunia [None]
  - Emotional distress [None]

NARRATIVE: CASE EVENT DATE: 2012
